FAERS Safety Report 13578246 (Version 6)
Quarter: 2018Q4

REPORT INFORMATION
  Report Type: Spontaneous
  Country: GB (occurrence: GB)
  Receive Date: 20170524
  Receipt Date: 20181009
  Transmission Date: 20190204
  Serious: Yes (Death, Other)
  Sender: FDA-Public Use
  Company Number: GB-ELI_LILLY_AND_COMPANY-GB201705009440

PATIENT
  Age: 56 Year
  Sex: Male

DRUGS (5)
  1. ZAPONEX [Suspect]
     Active Substance: CLOZAPINE
     Indication: PRODUCT USED FOR UNKNOWN INDICATION
     Dosage: UNK UNK, UNKNOWN
     Route: 048
     Dates: start: 20051020, end: 20170205
  2. CARBOPLATIN. [Concomitant]
     Active Substance: CARBOPLATIN
     Indication: PRODUCT USED FOR UNKNOWN INDICATION
     Dosage: UNK, UNKNOWN
     Route: 065
  3. CISPLATIN. [Suspect]
     Active Substance: CISPLATIN
     Indication: SQUAMOUS CELL CARCINOMA
     Dosage: UNK UNK, UNKNOWN
     Route: 065
     Dates: start: 201606
  4. ERBITUX [Suspect]
     Active Substance: CETUXIMAB
     Indication: SQUAMOUS CELL CARCINOMA
     Dosage: UNK UNK, UNKNOWN
     Route: 065
     Dates: start: 20170425
  5. 5 FLUOROURACIL                     /00098801/ [Suspect]
     Active Substance: FLUOROURACIL
     Indication: SQUAMOUS CELL CARCINOMA
     Dosage: UNK UNK, UNKNOWN
     Route: 065
     Dates: start: 20170425

REACTIONS (14)
  - Head and neck cancer [Fatal]
  - Thrombocytopenia [Fatal]
  - Amylase decreased [Fatal]
  - Contraindicated product administered [Fatal]
  - Platelet count increased [Fatal]
  - Blood glucose increased [Fatal]
  - Platelet count decreased [Recovered/Resolved]
  - Leukopenia [Fatal]
  - Lymphocyte count decreased [Fatal]
  - C-reactive protein increased [Fatal]
  - Neutrophil count decreased [Fatal]
  - Anaemia [Fatal]
  - Neutropenia [Fatal]
  - White blood cell count decreased [Recovered/Resolved]

NARRATIVE: CASE EVENT DATE: 20160627
